FAERS Safety Report 7878248-3 (Version None)
Quarter: 2011Q4

REPORT INFORMATION
  Report Type: 
  Country: None (occurrence: None)
  Receive Date: 20111027
  Receipt Date: 20111019
  Transmission Date: 20120403
  Serious: Yes (Other)
  Sender: FDA-Public Use
  Company Number: DSA_47908_2011

PATIENT
  Sex: Male

DRUGS (2)
  1. XENAZINE [Suspect]
     Indication: HUNTINGTON'S DISEASE
     Dosage: 50 MG, TID, (25 MG, TID), ORAL
     Route: 048
     Dates: start: 20111010
  2. XENAZINE [Suspect]
     Indication: HUNTINGTON'S DISEASE
     Dosage: 50 MG, TID, (25 MG, TID), ORAL
     Route: 048
     Dates: start: 20110723, end: 20111009

REACTIONS (4)
  - ASTHENIA [None]
  - SOMNOLENCE [None]
  - GAIT DISTURBANCE [None]
  - SPEECH DISORDER [None]
